FAERS Safety Report 13929741 (Version 1)
Quarter: 2017Q3

REPORT INFORMATION
  Report Type: Spontaneous
  Country: US (occurrence: US)
  Receive Date: 20170901
  Receipt Date: 20170901
  Transmission Date: 20171127
  Serious: Yes (Hospitalization, Other)
  Sender: FDA-Public Use
  Company Number: US-SAOL THERAPEUTICS-2017SAO01390

PATIENT
  Age: 33 Year
  Sex: Female

DRUGS (4)
  1. BACLOFEN. [Suspect]
     Active Substance: BACLOFEN
     Dosage: UNK ?G, \DAY
     Route: 037
     Dates: start: 20170613
  2. MORPHINE [Suspect]
     Active Substance: MORPHINE
     Dosage: 0.349 MG, \DAY
     Route: 037
     Dates: start: 20170321
  3. MORPHINE [Suspect]
     Active Substance: MORPHINE
     Dosage: 0.048 MG, \DAY
     Route: 037
     Dates: start: 201706
  4. MORPHINE [Suspect]
     Active Substance: MORPHINE
     Dosage: 0.448 MG, \DAY, MAX DOSE
     Route: 037
     Dates: start: 20170321

REACTIONS (4)
  - Pupil fixed [Recovered/Resolved]
  - Overdose [Recovered/Resolved]
  - Depressed level of consciousness [Recovered/Resolved]
  - Wrong drug administered [Recovered/Resolved]

NARRATIVE: CASE EVENT DATE: 2017
